FAERS Safety Report 4327172-1 (Version None)
Quarter: 2004Q1

REPORT INFORMATION
  Report Type: 
  Country: None (occurrence: None)
  Receive Date: 20040330
  Receipt Date: 20040310
  Transmission Date: 20041129
  Serious: Yes (Hospitalization)
  Sender: FDA-Public Use
  Company Number: PHBS2004JP03367

PATIENT
  Age: 75 Year
  Sex: Male

DRUGS (7)
  1. DIOVAN [Suspect]
     Indication: HYPERTENSION
     Dosage: 20 MG/DAY
     Route: 048
     Dates: start: 20030701, end: 20040301
  2. ZYLORIC [Concomitant]
     Indication: HYPERTENSION
  3. EUGLUCON [Concomitant]
     Indication: DIABETES MELLITUS
  4. ARTIST [Concomitant]
     Indication: ANGINA PECTORIS
  5. BASEN [Concomitant]
     Indication: DIABETES MELLITUS
  6. WARFARIN SODIUM [Concomitant]
     Indication: ANGINA PECTORIS
  7. DIPYRIDAMOLE [Concomitant]

REACTIONS (3)
  - COUGH [None]
  - HAEMOPTYSIS [None]
  - INTERSTITIAL LUNG DISEASE [None]
